FAERS Safety Report 24586384 (Version 1)
Quarter: 2024Q4

REPORT INFORMATION
  Report Type: Spontaneous
  Country: JP (occurrence: JP)
  Receive Date: 20241106
  Receipt Date: 20241106
  Transmission Date: 20250115
  Serious: Yes (Other)
  Sender: JOHNSON AND JOHNSON
  Company Number: JP-JNJFOC-20241062252

PATIENT
  Sex: Female

DRUGS (2)
  1. SIMPONI [Suspect]
     Active Substance: GOLIMUMAB
     Indication: Rheumatoid arthritis
     Dosage: DOSE UNKNOWN
     Route: 058
  2. SIMPONI [Suspect]
     Active Substance: GOLIMUMAB
     Dosage: DOSE UNKNOWN
     Route: 058
     Dates: start: 202408

REACTIONS (11)
  - Rheumatoid arthritis [Unknown]
  - Injection site pain [Unknown]
  - Fall [Unknown]
  - Contusion [Unknown]
  - Wrong technique in product usage process [Unknown]
  - Alopecia [Unknown]
  - Pruritus [Unknown]
  - Skin mass [Unknown]
  - Cough [Unknown]
  - Laboratory test abnormal [Unknown]
  - Onychoclasis [Unknown]

NARRATIVE: CASE EVENT DATE: 20240101
